FAERS Safety Report 8393075-9 (Version None)
Quarter: 2012Q2

REPORT INFORMATION
  Report Type: 
  Country: None (occurrence: None)
  Receive Date: 20120529
  Receipt Date: 20120404
  Transmission Date: 20120825
  Serious: No
  Sender: FDA-Public Use
  Company Number: US-ABBOTT-12P-163-0921974-00

PATIENT
  Sex: Male

DRUGS (1)
  1. ANDROGEL [Suspect]
     Indication: BLOOD TESTOSTERONE DECREASED
     Dates: start: 20110101

REACTIONS (4)
  - ERECTILE DYSFUNCTION [None]
  - DRUG INEFFECTIVE [None]
  - ASTHENIA [None]
  - PRODUCT PHYSICAL ISSUE [None]
